FAERS Safety Report 9784546 (Version 1)
Quarter: 2013Q4

REPORT INFORMATION
  Report Type: Spontaneous
  Country: US (occurrence: US)
  Receive Date: 20131226
  Receipt Date: 20131226
  Transmission Date: 20140711
  Serious: Yes (Other)
  Sender: FDA-Public Use
  Company Number: US-RB-061778-13

PATIENT
  Age: 63 Year
  Sex: Male

DRUGS (4)
  1. SUBOXONE TABLET [Suspect]
     Indication: DRUG DEPENDENCE
     Route: 060
     Dates: start: 2012
  2. BUPRENORPHINE/NALOXONE GENERIC [Suspect]
     Route: 060
  3. BUPRENORPHINE/NALOXONE GENERIC [Suspect]
     Indication: DRUG DEPENDENCE
     Dosage: TAKING VARIOUS DOSES; MEDICAL TAPER
     Route: 060
  4. BUPRENORPHINE/NALOXONE GENERIC [Suspect]
     Route: 060
     Dates: end: 20131215

REACTIONS (6)
  - Wrong technique in drug usage process [Recovered/Resolved]
  - Prescribed overdose [Recovered/Resolved]
  - Nausea [Not Recovered/Not Resolved]
  - Dehydration [Recovered/Resolved]
  - Haematemesis [Recovered/Resolved]
  - Throat irritation [Recovered/Resolved]
